FAERS Safety Report 6521410-2 (Version None)
Quarter: 2009Q4

REPORT INFORMATION
  Report Type: 
  Country: None (occurrence: None)
  Receive Date: 20091230
  Receipt Date: 20091216
  Transmission Date: 20100525
  Serious: Yes (Hospitalization)
  Sender: FDA-Public Use
  Company Number: FR-ROCHE-634038

PATIENT
  Sex: Male
  Weight: 67 kg

DRUGS (11)
  1. PEG-INTERFERON ALFA 2A (RO 25-8310) [Suspect]
     Route: 065
     Dates: start: 20090304
  2. RIBAVIRIN [Suspect]
     Route: 065
     Dates: start: 20090304
  3. EPOETIN BETA [Suspect]
     Dosage: LAST DOSE PRIOR TO SAE ON 8 MAY 2009
     Route: 058
     Dates: start: 20090319
  4. ISOPTIN [Concomitant]
     Dates: start: 20070810
  5. ANDROCUR [Concomitant]
     Dosage: TOTAL DAILY DOSE: 25 MG/72 HR
     Dates: start: 20070810
  6. SUBUTEX [Concomitant]
     Dates: start: 20070810
  7. KARDEGIC [Concomitant]
     Dates: start: 20080326
  8. TRUVADA [Concomitant]
     Dates: start: 20081219
  9. REYATAZ [Concomitant]
     Dates: start: 20081219
  10. NORVIR [Concomitant]
     Dates: start: 20081219
  11. DOLIPRANE [Concomitant]
     Dates: start: 20090304

REACTIONS (2)
  - ASTHENIA [None]
  - EMPHYSEMA [None]
